FAERS Safety Report 10754242 (Version 2)
Quarter: 2015Q1

REPORT INFORMATION
  Report Type: Spontaneous
  Country: CH (occurrence: CH)
  Receive Date: 20150202
  Receipt Date: 20150325
  Transmission Date: 20150721
  Serious: Yes (Hospitalization, Other)
  Sender: FDA-Public Use
  Company Number: CH-JNJFOC-20150120238

PATIENT
  Age: 43 Year
  Sex: Male

DRUGS (4)
  1. FLUOXETINE [Concomitant]
     Active Substance: FLUOXETINE\FLUOXETINE HYDROCHLORIDE
     Indication: DEPRESSED MOOD
     Route: 048
  2. SALOFALK [Concomitant]
     Active Substance: MESALAMINE
     Indication: CROHN^S DISEASE
     Route: 065
  3. TRAMAL [Concomitant]
     Active Substance: TRAMADOL
     Indication: ANKYLOSING SPONDYLITIS
     Route: 048
  4. SIMPONI [Suspect]
     Active Substance: GOLIMUMAB
     Indication: ANKYLOSING SPONDYLITIS
     Route: 058

REACTIONS (2)
  - Myocardial infarction [Recovered/Resolved]
  - Hypercholesterolaemia [Unknown]

NARRATIVE: CASE EVENT DATE: 201310
